FAERS Safety Report 9261632 (Version 2)
Quarter: 2013Q2

REPORT INFORMATION
  Report Type: Spontaneous
  Country: JP (occurrence: JP)
  Receive Date: 20130429
  Receipt Date: 20130522
  Transmission Date: 20140414
  Serious: No
  Sender: FDA-Public Use
  Company Number: JP-PFIZER INC-2013127447

PATIENT
  Age: 17 Year
  Sex: 0

DRUGS (2)
  1. JZOLOFT [Suspect]
     Dosage: 25 MG, 1X/DAY
     Route: 048
     Dates: start: 201105
  2. ROZEREM [Concomitant]
     Dosage: UNK

REACTIONS (2)
  - Drug eruption [Unknown]
  - Scratch [Unknown]
